FAERS Safety Report 5585836-6 (Version None)
Quarter: 2008Q1

REPORT INFORMATION
  Report Type: 
  Country: None (occurrence: None)
  Receive Date: 20080109
  Receipt Date: 20060601
  Transmission Date: 20080703
  Serious: Yes (Hospitalization, Other)
  Sender: FDA-Public Use
  Company Number: US-RANBAXY-2006US-01874

PATIENT

DRUGS (10)
  1. CIPROFLOXACIN [Suspect]
     Indication: WOUND INFECTION
     Dosage: 250 MG, BID
     Route: 048
     Dates: start: 20060314, end: 20060319
  2. CIPROFLOXACIN [Suspect]
     Dosage: 750 MG, BID
     Route: 048
     Dates: start: 20060314, end: 20060319
  3. LOPRESSOR [Concomitant]
     Indication: DRUG USE FOR UNKNOWN INDICATION
     Route: 065
  4. SYNTHROID [Concomitant]
     Indication: DRUG USE FOR UNKNOWN INDICATION
     Route: 065
  5. NEXIUM [Concomitant]
     Indication: DRUG USE FOR UNKNOWN INDICATION
     Route: 065
  6. HUMULIN R [Concomitant]
     Indication: DRUG USE FOR UNKNOWN INDICATION
     Route: 065
  7. BABY ASPRIN [Concomitant]
     Indication: DRUG USE FOR UNKNOWN INDICATION
     Route: 065
  8. CENTRUM SILVER [Concomitant]
     Indication: DRUG USE FOR UNKNOWN INDICATION
     Route: 065
  9. NATURE MADE IRON TABLETS [Concomitant]
     Indication: DRUG USE FOR UNKNOWN INDICATION
     Route: 048
  10. LASIX [Concomitant]
     Indication: DRUG USE FOR UNKNOWN INDICATION
     Route: 065

REACTIONS (8)
  - CELLULITIS [None]
  - HYPERSENSITIVITY [None]
  - OEDEMA PERIPHERAL [None]
  - OPEN WOUND [None]
  - PATHOGEN RESISTANCE [None]
  - PYREXIA [None]
  - SKIN DISCOLOURATION [None]
  - SKIN ULCER [None]
